FAERS Safety Report 12987466 (Version 3)
Quarter: 2018Q1

REPORT INFORMATION
  Report Type: Spontaneous
  Country: JP (occurrence: JP)
  Receive Date: 20161130
  Receipt Date: 20180116
  Transmission Date: 20180508
  Serious: Yes (Death, Hospitalization)
  Sender: FDA-Public Use
  Company Number: JP-SA-2016SA216666

PATIENT
  Age: 79 Year
  Sex: Male

DRUGS (1)
  1. TAXOTERE [Suspect]
     Active Substance: DOCETAXEL
     Indication: PROSTATE CANCER
     Route: 065
     Dates: start: 201605, end: 201605

REACTIONS (11)
  - Intestinal ischaemia [Fatal]
  - Pneumatosis intestinalis [Fatal]
  - Pneumonia [Fatal]
  - Blood pressure decreased [Fatal]
  - Abdominal pain [Fatal]
  - Sepsis [Fatal]
  - Gastrointestinal necrosis [Fatal]
  - Gallbladder necrosis [Fatal]
  - Pyrexia [Unknown]
  - Ascites [Fatal]
  - Bone marrow failure [Unknown]
